FAERS Safety Report 9244115 (Version 2)
Quarter: 2013Q2

REPORT INFORMATION
  Report Type: Spontaneous
  Country: US (occurrence: None)
  Receive Date: 20121123
  Receipt Date: 20130225
  Transmission Date: 20140414
  Serious: No
  Sender: FDA-Public Use
  Company Number: 363184

PATIENT
  Age: 67 Year
  Sex: Male

DRUGS (2)
  1. VICTOZA [Suspect]
     Indication: TYPE 2 DIABETES MELLITUS
     Route: 058
     Dates: start: 20120904
  2. METFORMIN (METFORMIN) [Concomitant]

REACTIONS (7)
  - Abdominal pain upper [None]
  - Flatulence [None]
  - Blood glucose decreased [None]
  - Vomiting [None]
  - Blood glucose increased [None]
  - Constipation [None]
  - Diarrhoea [None]
